FAERS Safety Report 16127388 (Version 1)
Quarter: 2019Q1

REPORT INFORMATION
  Report Type: Spontaneous
  Country: FR (occurrence: FR)
  Receive Date: 20190328
  Receipt Date: 20190328
  Transmission Date: 20190418
  Serious: No
  Sender: FDA-Public Use
  Company Number: FR-B. BRAUN MEDICAL INC.-2064817

PATIENT
  Age: 38 Year
  Sex: Female

DRUGS (3)
  1. SODIUM CHLORIDE. [Suspect]
     Active Substance: SODIUM CHLORIDE
     Route: 042
  2. POTASSIUM CHLORIDE. [Suspect]
     Active Substance: POTASSIUM CHLORIDE
     Route: 042
  3. DEXTROSE INJECTIONS USP 0264-7510-00 0264-7510-20 [Suspect]
     Active Substance: DEXTROSE
     Indication: DEHYDRATION
     Route: 042

REACTIONS (4)
  - Hypotension [Not Recovered/Not Resolved]
  - Haematoma [Not Recovered/Not Resolved]
  - Rash [Not Recovered/Not Resolved]
  - Dehydration [Not Recovered/Not Resolved]
